FAERS Safety Report 9657362 (Version 2)
Quarter: 2014Q1

REPORT INFORMATION
  Report Type: Spontaneous
  Country: DK (occurrence: DK)
  Receive Date: 20131030
  Receipt Date: 20140317
  Transmission Date: 20141002
  Serious: Yes (Other)
  Sender: FDA-Public Use
  Company Number: DK-GLAXOSMITHKLINE-B0936891A

PATIENT
  Age: 23 Year
  Sex: Female

DRUGS (3)
  1. ZINACEF [Suspect]
     Indication: LYMPHADENOPATHY
     Dosage: 2G THREE TIMES PER DAY
     Route: 042
     Dates: start: 20121118, end: 20121119
  2. GENTAMICIN [Suspect]
     Indication: LYMPHADENOPATHY
     Dosage: 400MG PER DAY
     Route: 042
     Dates: start: 20121118, end: 20121119
  3. GARDASIL [Suspect]
     Indication: PROPHYLAXIS
     Dosage: 1INJ SINGLE DOSE
     Route: 042
     Dates: start: 20121116, end: 20121116

REACTIONS (7)
  - Stevens-Johnson syndrome [Recovered/Resolved]
  - Rash [Recovered/Resolved]
  - Headache [Recovered/Resolved]
  - Pain in extremity [Recovered/Resolved]
  - Disturbance in attention [Recovered/Resolved]
  - Memory impairment [Recovered/Resolved]
  - Dizziness [Recovered/Resolved]
